FAERS Safety Report 9559952 (Version 1)
Quarter: 2013Q3

REPORT INFORMATION
  Report Type: Spontaneous
  Country: US (occurrence: None)
  Receive Date: 20130906
  Receipt Date: 20130906
  Transmission Date: 20140515
  Serious: Yes (Hospitalization)
  Sender: FDA-Public Use
  Company Number: 163-POMAL-13074473

PATIENT
  Age: 60 Year
  Sex: Female
  Weight: 100.7 kg

DRUGS (11)
  1. POMALYST [Suspect]
     Indication: PLASMA CELL MYELOMA
     Route: 048
     Dates: start: 201306
  2. BABY ASPIRIN (ACETYLSALICYLIC ACID) [Concomitant]
  3. CALCIUM PLUS VITAMIN D [Concomitant]
  4. CENTRUM SILVER [Concomitant]
  5. CYMBALTA (DULOXETINE HYDROCHLORIDE) [Concomitant]
  6. LEVOTHYROXINE [Concomitant]
  7. LOPERAMIDE [Concomitant]
  8. OXYCODONE [Concomitant]
  9. PEPCID (FAMOTIDINE) [Concomitant]
  10. POTASSIUM CHLORIDE [Concomitant]
  11. VITAMIND D (ERGOCALCIFEROL) [Concomitant]

REACTIONS (3)
  - Hypercalcaemia [None]
  - Confusional state [None]
  - Febrile neutropenia [None]
